FAERS Safety Report 9733597 (Version 1)
Quarter: 2013Q4

REPORT INFORMATION
  Report Type: Spontaneous
  Country: FR (occurrence: FR)
  Receive Date: 20131205
  Receipt Date: 20131205
  Transmission Date: 20140711
  Serious: Yes (Life-Threatening, Hospitalization)
  Sender: FDA-Public Use
  Company Number: FR-GLAXOSMITHKLINE-B0949022A

PATIENT
  Age: 65 Year
  Sex: Female

DRUGS (11)
  1. ARIXTRA [Suspect]
     Indication: ACUTE CORONARY SYNDROME
     Dosage: 2.5MG PER DAY
     Route: 058
     Dates: start: 20131025, end: 20131025
  2. KARDEGIC [Suspect]
     Indication: ACUTE CORONARY SYNDROME
     Dosage: 75MG PER DAY
     Route: 048
     Dates: start: 20131025, end: 20131025
  3. PLAVIX [Suspect]
     Indication: ACUTE CORONARY SYNDROME
     Dosage: 75MG PER DAY
     Route: 048
     Dates: start: 20131025, end: 20131025
  4. LASILIX [Concomitant]
     Dosage: 10MG PER DAY
     Route: 048
     Dates: end: 20131025
  5. DIAMICRON [Concomitant]
     Dosage: 30MG TWICE PER DAY
     Route: 048
     Dates: end: 20131026
  6. GLUCOPHAGE [Concomitant]
     Dosage: 1000MG THREE TIMES PER DAY
     Route: 048
     Dates: end: 20131024
  7. VICTOZA [Concomitant]
     Dosage: 1INJ THREE TIMES PER DAY
     Route: 058
     Dates: end: 20131026
  8. BUDESONIDE [Concomitant]
     Dosage: 400MCG TWICE PER DAY
     Route: 055
  9. ALLOPURINOL [Concomitant]
     Dosage: 100MG PER DAY
     Route: 048
     Dates: end: 20131026
  10. INEXIUM [Concomitant]
     Dosage: 40MG PER DAY
     Route: 048
  11. ZOLPIDEM [Concomitant]
     Route: 048

REACTIONS (12)
  - Peritoneal haemorrhage [Not Recovered/Not Resolved]
  - Shock haemorrhagic [Not Recovered/Not Resolved]
  - Malaise [Unknown]
  - Vomiting [Unknown]
  - Diarrhoea [Unknown]
  - Shock [Not Recovered/Not Resolved]
  - Altered state of consciousness [Unknown]
  - Abdominal pain [Unknown]
  - Pleural effusion [Unknown]
  - Anaemia [Unknown]
  - Renal tubular necrosis [Unknown]
  - Drug interaction [Unknown]
